FAERS Safety Report 8129803-7 (Version None)
Quarter: 2012Q1

REPORT INFORMATION
  Report Type: 
  Country: None (occurrence: None)
  Receive Date: 20120210
  Receipt Date: 20120210
  Transmission Date: 20120608
  Serious: Yes (Life-Threatening)
  Sender: FDA-Public Use
  Company Number: None

PATIENT
  Age: 42 Year
  Sex: Male
  Weight: 117.93 kg

DRUGS (9)
  1. VIREAD [Concomitant]
  2. VITAMIN D [Concomitant]
  3. EPZICOM 600 MG-300 MG [Concomitant]
  4. EGRIFTA [Suspect]
     Indication: FAT REDISTRIBUTION
     Dosage: 2 MG
     Route: 058
     Dates: start: 20111024, end: 20120106
  5. UROCIT-K 10 [Concomitant]
  6. ACYCLOVIR [Concomitant]
     Route: 048
  7. UROCIT-K 10 [Concomitant]
  8. INTELENCE [Concomitant]
     Route: 048
  9. MULTI-VITAMIN [Concomitant]
     Route: 048

REACTIONS (1)
  - SUICIDAL IDEATION [None]
